FAERS Safety Report 12081361 (Version 2)
Quarter: 2016Q1

REPORT INFORMATION
  Report Type: Spontaneous
  Country: US (occurrence: US)
  Receive Date: 20160216
  Receipt Date: 20160308
  Transmission Date: 20160526
  Serious: Yes (Other)
  Sender: FDA-Public Use
  Company Number: US-JNJFOC-20160207718

PATIENT
  Sex: Female
  Weight: 100.7 kg

DRUGS (1)
  1. XARELTO [Suspect]
     Active Substance: RIVAROXABAN
     Indication: PULMONARY EMBOLISM
     Route: 048

REACTIONS (4)
  - Large intestine polyp [Unknown]
  - Incorrect dose administered [Unknown]
  - Off label use [Unknown]
  - Haemorrhage [Recovered/Resolved]
